FAERS Safety Report 11660863 (Version 2)
Quarter: 2015Q4

REPORT INFORMATION
  Report Type: Spontaneous
  Country: CZ (occurrence: CZ)
  Receive Date: 20151026
  Receipt Date: 20151111
  Transmission Date: 20160304
  Serious: Yes (Hospitalization, Other)
  Sender: FDA-Public Use
  Company Number: CZ-TEVA-603558ISR

PATIENT
  Age: 68 Year
  Sex: Male

DRUGS (2)
  1. CYCLOPHOSPHAMIDE. [Concomitant]
     Active Substance: CYCLOPHOSPHAMIDE
     Dosage: ONE PULSE OF CYCLOPHOSPHAMIDE
  2. METHYLPREDNISOLONE. [Suspect]
     Active Substance: METHYLPREDNISOLONE
     Dosage: SEVERAL PULSES OF METHYLPREDNISOLONE

REACTIONS (3)
  - Glomerulonephritis rapidly progressive [Recovering/Resolving]
  - Condition aggravated [Recovered/Resolved]
  - Renal failure [Recovered/Resolved]
